FAERS Safety Report 6455445-5 (Version None)
Quarter: 2009Q4

REPORT INFORMATION
  Report Type: 
  Country: None (occurrence: None)
  Receive Date: 20091125
  Receipt Date: 20091116
  Transmission Date: 20100525
  Serious: Yes (Hospitalization)
  Sender: FDA-Public Use
  Company Number: US-ABBOTT-09P-163-0603894-00

PATIENT
  Sex: Male
  Weight: 75.818 kg

DRUGS (9)
  1. VICODIN [Suspect]
     Indication: DRUG USE FOR UNKNOWN INDICATION
     Route: 048
  2. ALCOHOL [Suspect]
     Indication: DRUG USE FOR UNKNOWN INDICATION
     Route: 048
     Dates: start: 20090914, end: 20090916
  3. BLINDED STUDY DRUG [Suspect]
     Indication: MAJOR DEPRESSION
     Dates: start: 20090818, end: 20090906
  4. MULTI-VITAMIN [Concomitant]
     Indication: ROUTINE HEALTH MAINTENANCE
     Route: 048
     Dates: start: 20080101
  5. TYLENOL (CAPLET) [Concomitant]
     Indication: BACK PAIN
     Dosage: 1 - 2 DOSAGE FORMS
     Route: 048
     Dates: start: 19890101
  6. TYLENOL (CAPLET) [Concomitant]
     Indication: HEADACHE
  7. IBUPROFEN [Concomitant]
     Indication: BACK PAIN
     Route: 048
     Dates: start: 19890101
  8. IBUPROFEN [Concomitant]
     Indication: HEADACHE
  9. MAALOX [Concomitant]
     Indication: DYSPEPSIA
     Route: 048
     Dates: start: 20090101

REACTIONS (5)
  - AGITATION [None]
  - ALCOHOLISM [None]
  - ANXIETY [None]
  - DEPRESSION [None]
  - HALLUCINATION, AUDITORY [None]
